FAERS Safety Report 10243103 (Version 1)
Quarter: 2014Q2

REPORT INFORMATION
  Report Type: Spontaneous
  Country: US (occurrence: None)
  Receive Date: 20140613
  Receipt Date: 20140613
  Transmission Date: 20141212
  Serious: Yes (Hospitalization)
  Sender: FDA-Public Use
  Company Number: 2014STPI000241

PATIENT
  Age: 76 Year
  Sex: Female

DRUGS (8)
  1. MATULANE (PROCARBAZINE HYDROCHLORIDE) CAPSULE, 50 MG [Suspect]
     Indication: GLIOMA
     Dosage: 150MG, QD, ORAL, 10 DAYS
     Route: 048
  2. FOSAMAX (ALENDRONATE SODIUM) [Concomitant]
  3. DILANTIN (PHENYTOIN) [Concomitant]
  4. LYRICA (PREGABALIN) [Concomitant]
  5. SIMVASTATIN (SIMVASTATIN) [Concomitant]
  6. LISINOPRIL (LISINOPRIL) [Concomitant]
  7. METOPROLOL/HCTZ (HYROCHLOROTHIAZIDE, METOPROLOL TARTRATE) [Concomitant]
  8. ASPIRIN (ACETYLSALICYLIC ACID) [Concomitant]

REACTIONS (2)
  - Fluid overload [None]
  - Hypotension [None]
